FAERS Safety Report 22177346 (Version 1)
Quarter: 2023Q2

REPORT INFORMATION
  Report Type: Spontaneous
  Country: US (occurrence: US)
  Receive Date: 20230405
  Receipt Date: 20230405
  Transmission Date: 20230722
  Serious: No
  Sender: FDA-Public Use
  Company Number: US-CHEMOCENTRYX, INC.-2023USCCXI0642

PATIENT

DRUGS (1)
  1. TAVNEOS [Suspect]
     Active Substance: AVACOPAN
     Indication: Arteritis
     Dosage: 30 MG, 2X/DAY
     Route: 048
     Dates: start: 20220913

REACTIONS (4)
  - Alopecia [Not Recovered/Not Resolved]
  - Onychomadesis [Not Recovered/Not Resolved]
  - Expired product administered [Not Recovered/Not Resolved]
  - Rash [Not Recovered/Not Resolved]
